FAERS Safety Report 15497750 (Version 1)
Quarter: 2018Q4

REPORT INFORMATION
  Report Type: Spontaneous
  Country: FR (occurrence: FR)
  Receive Date: 20181015
  Receipt Date: 20181015
  Transmission Date: 20190205
  Serious: Yes (Life-Threatening, Other)
  Sender: FDA-Public Use
  Company Number: FR-AUROBINDO-AUR-APL-2018-050320

PATIENT
  Age: 65 Year
  Sex: Male
  Weight: 65 kg

DRUGS (2)
  1. CARBOPLATIN. [Suspect]
     Active Substance: CARBOPLATIN
     Indication: OESOPHAGEAL ADENOCARCINOMA
     Dosage: UNK
     Route: 042
     Dates: start: 20180509, end: 20180509
  2. PACLITAXEL. [Suspect]
     Active Substance: PACLITAXEL
     Indication: OESOPHAGEAL ADENOCARCINOMA
     Dosage: UNK
     Route: 042
     Dates: start: 20180509, end: 20180509

REACTIONS (2)
  - Seizure [Recovered/Resolved]
  - Anaphylactoid shock [Recovered/Resolved]

NARRATIVE: CASE EVENT DATE: 20180509
